FAERS Safety Report 24177188 (Version 1)
Quarter: 2024Q3

REPORT INFORMATION
  Report Type: Report from Study
  Country: BR (occurrence: BR)
  Receive Date: 20240806
  Receipt Date: 20240806
  Transmission Date: 20241017
  Serious: Yes (Disabling)
  Sender: TAKEDA
  Company Number: BR-TAKEDA-2024TUS077211

PATIENT
  Age: 35 Year
  Sex: Female

DRUGS (1)
  1. VEDOLIZUMAB [Suspect]
     Active Substance: VEDOLIZUMAB
     Indication: Colitis ulcerative
     Dosage: UNK
     Route: 042

REACTIONS (3)
  - Visual impairment [Unknown]
  - Inappropriate schedule of product administration [Not Recovered/Not Resolved]
  - Illness [Unknown]

NARRATIVE: CASE EVENT DATE: 20240724
